FAERS Safety Report 11313580 (Version 1)
Quarter: 2015Q3

REPORT INFORMATION
  Report Type: Spontaneous
  Country: US (occurrence: US)
  Receive Date: 20150727
  Receipt Date: 20150727
  Transmission Date: 20151125
  Serious: No
  Sender: FDA-Public Use
  Company Number: US-PFIZER INC-2015238138

PATIENT
  Sex: Male

DRUGS (1)
  1. ZOLOFT [Suspect]
     Active Substance: SERTRALINE HYDROCHLORIDE
     Dosage: UNK

REACTIONS (6)
  - Anxiety [Unknown]
  - Gait disturbance [Unknown]
  - Drug withdrawal syndrome [Unknown]
  - Nervousness [Unknown]
  - Depersonalisation [Unknown]
  - Tremor [Unknown]
